FAERS Safety Report 13647649 (Version 1)
Quarter: 2017Q2

REPORT INFORMATION
  Report Type: Spontaneous
  Country: CH (occurrence: CH)
  Receive Date: 20170613
  Receipt Date: 20170613
  Transmission Date: 20170830
  Serious: Yes (Hospitalization)
  Sender: FDA-Public Use
  Company Number: CH-TEVA-775632ISR

PATIENT
  Age: 79 Year
  Sex: Female
  Weight: 75 kg

DRUGS (12)
  1. COSAAR FILMTABLETTEN [Concomitant]
     Dosage: 50 MILLIGRAM DAILY;
     Route: 048
  2. VENTOLIN [Concomitant]
     Active Substance: ALBUTEROL SULFATE
     Dosage: 3 DOSAGE FORMS DAILY;
     Route: 055
  3. ATROVENT 250 MCG/1ML INH.LOES [Concomitant]
     Dosage: 3 DOSAGE FORMS DAILY;
     Route: 055
  4. SERETIDE [Concomitant]
     Active Substance: FLUTICASONE PROPIONATE\SALMETEROL XINAFOATE
     Dosage: 2 DOSAGE FORMS DAILY;
     Route: 055
  5. CO LOSARTAN SANDOZ [Concomitant]
     Dosage: 1 DOSAGE FORMS DAILY;
     Route: 048
  6. PANTOZOL [Concomitant]
     Active Substance: PANTOPRAZOLE SODIUM
     Dosage: 20 MILLIGRAM DAILY;
     Route: 048
  7. BONVIVA I.V [Concomitant]
     Dosage: .0333 MILLIGRAM DAILY;
     Route: 040
  8. CO-AMOXI [Suspect]
     Active Substance: AMOXICILLIN\CLAVULANATE POTASSIUM
     Route: 041
     Dates: start: 20170424, end: 20170424
  9. SIMCORA 20 [Concomitant]
     Dosage: 20 MILLIGRAM DAILY;
     Route: 048
  10. VI-DE 3 TROPFLOESUNG [Concomitant]
     Dosage: 15 GTT DAILY;
     Route: 048
  11. ASPIRIN CARDIO 100 FILMTABLETTEN [Concomitant]
     Active Substance: ASPIRIN
     Dosage: 100 MILLIGRAM DAILY;
     Route: 048
  12. DOXIUM 500 CAPSULES [Concomitant]
     Dosage: 1000 MILLIGRAM DAILY;
     Route: 048

REACTIONS (5)
  - Dysarthria [Recovered/Resolved]
  - Amnesia [Recovered/Resolved]
  - Altered state of consciousness [Recovered/Resolved]
  - Sopor [Recovered/Resolved]
  - Asthenia [Recovered/Resolved]

NARRATIVE: CASE EVENT DATE: 20170424
